FAERS Safety Report 8172561-0 (Version None)
Quarter: 2012Q1

REPORT INFORMATION
  Report Type: 
  Country: None (occurrence: None)
  Receive Date: 20120229
  Receipt Date: 20120224
  Transmission Date: 20120608
  Serious: Yes (Hospitalization)
  Sender: FDA-Public Use
  Company Number: US-BAYER-2012-016989

PATIENT
  Age: 20 Year
  Sex: Female

DRUGS (2)
  1. ALBUTEROL [Concomitant]
     Indication: ASTHMA
  2. YAZ [Suspect]
     Indication: POLYCYSTIC OVARIES

REACTIONS (5)
  - DEEP VEIN THROMBOSIS [None]
  - PULMONARY EMBOLISM [None]
  - ANXIETY [None]
  - PAIN [None]
  - INJURY [None]
